FAERS Safety Report 4680690-9 (Version None)
Quarter: 2005Q2

REPORT INFORMATION
  Report Type: 
  Country: None (occurrence: None)
  Receive Date: 20050603
  Receipt Date: 20050414
  Transmission Date: 20051028
  Serious: Yes (Death, Other)
  Sender: FDA-Public Use
  Company Number: 2005AP02278

PATIENT
  Age: 18923 Day
  Sex: Male

DRUGS (16)
  1. IRESSA [Suspect]
     Indication: LUNG ADENOCARCINOMA
     Route: 048
     Dates: start: 20050325, end: 20050411
  2. DECADRON [Suspect]
     Indication: METASTASES TO CENTRAL NERVOUS SYSTEM
     Dates: start: 20050324, end: 20050413
  3. VOLTAREN [Concomitant]
     Dates: start: 20050324
  4. GLYCEOL [Concomitant]
     Indication: METASTASES TO CENTRAL NERVOUS SYSTEM
  5. RADIATION THERAPY [Concomitant]
     Dosage: ADMINISTERED TO CHEST REGION (66 GY)
     Dates: start: 20040915
  6. RADIATION THERAPY [Concomitant]
     Dosage: ADMINISTERED TO WHOLE BRAIN (30 GY)
     Dates: start: 20050329, end: 20050411
  7. CALONAL [Concomitant]
     Indication: ANTIPYRESIS
     Route: 048
     Dates: start: 20050402, end: 20050413
  8. PURSENNID [Concomitant]
     Route: 048
     Dates: start: 20050402
  9. RESTAMIN [Concomitant]
     Dates: start: 20050409
  10. MEDICON [Concomitant]
     Route: 048
  11. CISPLATIN [Concomitant]
     Dosage: 2 COURSES
     Dates: start: 20040914
  12. VINDESINE [Concomitant]
     Dosage: 2 COURSES
     Dates: start: 20040914
  13. CARBOPLATIN [Concomitant]
     Dosage: 2 COURSES
     Dates: start: 20041012
  14. PACLITAXEL [Concomitant]
     Dosage: 2 COURSES
     Dates: start: 20041012
  15. GEMCITABINE [Concomitant]
     Dosage: 2 COURSES
     Dates: start: 20050101
  16. VINORELBINE TARTRATE [Concomitant]
     Dosage: 2 COURSES
     Dates: start: 20050101

REACTIONS (2)
  - BLOOD GLUCOSE INCREASED [None]
  - PNEUMOTHORAX [None]
